FAERS Safety Report 6616682-X (Version None)
Quarter: 2010Q1

REPORT INFORMATION
  Report Type: 
  Country: None (occurrence: None)
  Receive Date: 20100305
  Receipt Date: 20100225
  Transmission Date: 20100710
  Serious: Yes (Life-Threatening)
  Sender: FDA-Public Use
  Company Number: NL-ELI_LILLY_AND_COMPANY-NL201002004967

PATIENT
  Sex: Female

DRUGS (6)
  1. SOMATROPIN [Suspect]
     Indication: GROWTH HORMONE DEFICIENCY
     Dosage: 0.1 MG, UNK
     Route: 058
     Dates: start: 19970101
  2. FLUDROCORTISON [Concomitant]
     Indication: ADRENALECTOMY
     Dates: start: 19960101
  3. HYDROCORTISON [Concomitant]
     Indication: ADRENALECTOMY
     Dates: start: 19960101
  4. PROMOCARD [Concomitant]
     Indication: ANGINA PECTORIS
     Dates: start: 19950101
  5. ASCAL /00002702/ [Concomitant]
     Indication: ANGINA PECTORIS
     Dates: start: 19950101
  6. METOPROLOL TARTRATE [Concomitant]
     Indication: ANGINA PECTORIS
     Dates: start: 19950101

REACTIONS (1)
  - ADDISON'S DISEASE [None]
